FAERS Safety Report 17813918 (Version 1)
Quarter: 2020Q2

REPORT INFORMATION
  Report Type: Spontaneous
  Country: US (occurrence: US)
  Receive Date: 20200521
  Receipt Date: 20200521
  Transmission Date: 20200714
  Serious: Yes (Other)
  Sender: FDA-Public Use
  Company Number: US-CLARIONBRANDS-2020-US-009584

PATIENT
  Age: 57 Year
  Sex: Female
  Weight: 74.84 kg

DRUGS (4)
  1. MELOXICAM. [Concomitant]
     Active Substance: MELOXICAM
  2. ABSORBINE JR. PLUS [Suspect]
     Active Substance: MENTHOL
     Indication: ANALGESIC THERAPY
     Dosage: 1 APPLICATION
     Route: 061
     Dates: start: 20200506, end: 20200506
  3. PREGABALIN. [Concomitant]
     Active Substance: PREGABALIN
  4. TIZANIDINE. [Concomitant]
     Active Substance: TIZANIDINE

REACTIONS (4)
  - Gait inability [Unknown]
  - Hypoaesthesia [Not Recovered/Not Resolved]
  - Paraesthesia [Not Recovered/Not Resolved]
  - Fear [Not Recovered/Not Resolved]

NARRATIVE: CASE EVENT DATE: 20200506
